FAERS Safety Report 10178442 (Version 3)
Quarter: 2014Q2

REPORT INFORMATION
  Report Type: Spontaneous
  Country: US (occurrence: US)
  Receive Date: 20140519
  Receipt Date: 20140522
  Transmission Date: 20141212
  Serious: Yes (Death, Hospitalization)
  Sender: FDA-Public Use
  Company Number: US-JNJFOC-20140413842

PATIENT
  Age: 86 Year
  Sex: Male
  Weight: 103.8 kg

DRUGS (4)
  1. ASPIRIN [Suspect]
     Indication: PRODUCT USED FOR UNKNOWN INDICATION
     Route: 065
  2. INSULIN DRIP [Concomitant]
     Indication: DIABETES MELLITUS
     Route: 065
  3. XARELTO [Suspect]
     Indication: CEREBROVASCULAR ACCIDENT PROPHYLAXIS
     Dosage: HOUR OF SLEEP ONLY ONCE (ADMINISTERED 2000)
     Route: 048
     Dates: start: 20140121, end: 201401
  4. XARELTO [Suspect]
     Indication: ATRIAL FIBRILLATION
     Dosage: HOUR OF SLEEP ONLY ONCE (ADMINISTERED 2000)
     Route: 048
     Dates: start: 20140121, end: 201401

REACTIONS (8)
  - Blood bilirubin increased [Fatal]
  - Rectal haemorrhage [Recovered/Resolved]
  - Gastrointestinal haemorrhage [Recovered/Resolved]
  - Haemoglobin decreased [Unknown]
  - International normalised ratio increased [Unknown]
  - Platelet count decreased [Unknown]
  - Prothrombin time prolonged [Unknown]
  - Encephalopathy [Fatal]
